FAERS Safety Report 6470234-3 (Version None)
Quarter: 2009Q4

REPORT INFORMATION
  Report Type: 
  Country: None (occurrence: None)
  Receive Date: 20091203
  Receipt Date: 20080625
  Transmission Date: 20100525
  Serious: Yes (Hospitalization, Disabling)
  Sender: FDA-Public Use
  Company Number: US-ELI_LILLY_AND_COMPANY-US200712002774

PATIENT
  Age: 37 Year
  Sex: Female

DRUGS (7)
  1. STRATTERA [Suspect]
     Indication: ATTENTION DEFICIT/HYPERACTIVITY DISORDER
     Dosage: 60 MG, DAILY (1/D)
  2. TYLENOL /USA/ [Concomitant]
     Indication: PAIN
  3. ACETAMINOPHEN AND HYDROCODONE BITARTRATE [Concomitant]
     Indication: PAIN
  4. CONJUGATED ESTROGENS [Concomitant]
  5. CEFTRIAXONE [Concomitant]
  6. CEFAZOLIN [Concomitant]
  7. VANCOMYCIN [Concomitant]

REACTIONS (2)
  - ABSCESS NECK [None]
  - OESOPHAGEAL PERFORATION [None]
